FAERS Safety Report 9377368 (Version 2)
Quarter: 2013Q3

REPORT INFORMATION
  Report Type: Spontaneous
  Country: ES (occurrence: ES)
  Receive Date: 20130701
  Receipt Date: 20130730
  Transmission Date: 20140515
  Serious: Yes (Life-Threatening, Hospitalization)
  Sender: FDA-Public Use
  Company Number: ES-PFIZER INC-2013192243

PATIENT
  Age: 46 Year
  Sex: Male
  Weight: 80 kg

DRUGS (6)
  1. CARBOPLATIN [Suspect]
     Indication: LUNG NEOPLASM MALIGNANT
     Dosage: 500 MG, TOTAL
     Route: 042
     Dates: start: 20130513, end: 20130513
  2. PACLITAXEL [Suspect]
     Indication: LUNG NEOPLASM MALIGNANT
     Dosage: 330 MG, TOTAL
     Route: 042
     Dates: start: 20130513, end: 20130513
  3. DEXCHLORPHENIRAMINE MALEATE [Concomitant]
     Indication: PREMEDICATION
     Dosage: 5 MG, TOTAL
     Route: 042
     Dates: start: 20130513, end: 20130513
  4. FORTECORTIN [Concomitant]
     Indication: PREMEDICATION
     Dosage: 20 MG, 1X/DAY
     Route: 042
     Dates: start: 20130513, end: 20130513
  5. ONDASETRON [Concomitant]
     Indication: PREMEDICATION
     Dosage: 8 MG, TOTAL
     Route: 042
     Dates: start: 20130513, end: 20130513
  6. RANITIDINE [Concomitant]
     Indication: PREMEDICATION
     Dosage: 50 MG, TOTAL
     Route: 042
     Dates: start: 20130513, end: 20130513

REACTIONS (4)
  - Hypotension [Unknown]
  - Chest pain [Unknown]
  - Cardio-respiratory arrest [Unknown]
  - Loss of consciousness [Unknown]
